FAERS Safety Report 7077500-1 (Version None)
Quarter: 2010Q4

REPORT INFORMATION
  Report Type: 
  Country: None (occurrence: None)
  Receive Date: 20101101
  Receipt Date: 20101022
  Transmission Date: 20110411
  Serious: Yes (Hospitalization, Other)
  Sender: FDA-Public Use
  Company Number: US-ABBOTT-10P-163-0681199-00

PATIENT
  Sex: Female
  Weight: 58.566 kg

DRUGS (11)
  1. HUMIRA [Suspect]
     Indication: RHEUMATOID ARTHRITIS
     Dates: start: 20080101
  2. HUMIRA [Suspect]
     Dates: end: 20101018
  3. METHOTREXATE [Suspect]
     Indication: RHEUMATOID ARTHRITIS
     Dosage: 2.5 MG X 3 TABLETS
     Dates: start: 20080101, end: 20101015
  4. MULTI-VITAMIN [Concomitant]
     Indication: VITAMIN SUPPLEMENTATION
  5. ZOLOFT [Concomitant]
     Indication: DEPRESSION
  6. TRILEPTAL [Concomitant]
     Indication: DEPRESSION
  7. PREDNISONE [Concomitant]
     Indication: RHEUMATOID ARTHRITIS
  8. VITAMIN D [Concomitant]
     Indication: VITAMIN SUPPLEMENTATION
     Dosage: 50000 UNITS TWICE A DAY ONCE A WEEK
  9. FOSAMAX [Concomitant]
     Indication: BONE DISORDER
  10. VITAMIN B-12 [Concomitant]
     Indication: VITAMIN SUPPLEMENTATION
     Route: 050
  11. SYNTHROID [Concomitant]
     Indication: PRODUCT USED FOR UNKNOWN INDICATION

REACTIONS (17)
  - ASTHENIA [None]
  - DEEP VEIN THROMBOSIS [None]
  - DEHYDRATION [None]
  - DIZZINESS [None]
  - FEELING COLD [None]
  - FEELING OF BODY TEMPERATURE CHANGE [None]
  - HYPERHIDROSIS [None]
  - HYPOTENSION [None]
  - MOBILITY DECREASED [None]
  - PLATELET COUNT DECREASED [None]
  - PYREXIA [None]
  - RED BLOOD CELL COUNT DECREASED [None]
  - RETCHING [None]
  - TREMOR [None]
  - WEIGHT DECREASED [None]
  - WHITE BLOOD CELL COUNT DECREASED [None]
  - WHITE BLOOD CELL COUNT INCREASED [None]
